FAERS Safety Report 21432440 (Version 1)
Quarter: 2022Q4

REPORT INFORMATION
  Report Type: Spontaneous
  Country: GB (occurrence: GB)
  Receive Date: 20221009
  Receipt Date: 20221009
  Transmission Date: 20230112
  Serious: Yes (Hospitalization, Other)
  Sender: FDA-Public Use
  Company Number: None

PATIENT

DRUGS (20)
  1. BUPIVACAINE [Suspect]
     Active Substance: BUPIVACAINE
     Indication: Spinal anaesthesia
     Dosage: 2.2 MILLILITERS (ADMINISTERED INTO SA SPACE RESULTING IN A STRONG BLOCK L4)
     Route: 037
     Dates: start: 20220609, end: 20220609
  2. BUPIVACAINE [Suspect]
     Active Substance: BUPIVACAINE
     Indication: Laparoscopic surgery
  3. BUPIVACAINE [Suspect]
     Active Substance: BUPIVACAINE
     Indication: Nephrectomy
  4. SEVOFLURANE [Suspect]
     Active Substance: SEVOFLURANE
     Indication: General anaesthesia
     Dosage: UNREMARKABLE INTUBATION (ET TUBE) GA, INHALATION
     Route: 055
     Dates: start: 20220609, end: 20220609
  5. SEVOFLURANE [Suspect]
     Active Substance: SEVOFLURANE
     Indication: Laparoscopic surgery
  6. SEVOFLURANE [Suspect]
     Active Substance: SEVOFLURANE
     Indication: Nephrectomy
  7. PROPOFOL [Suspect]
     Active Substance: PROPOFOL
     Indication: General anaesthesia
     Dosage: UNREMARKABLE INTUBATION (ET TUBE) GA, INHALATION
     Route: 055
     Dates: start: 20220609, end: 20220609
  8. PROPOFOL [Suspect]
     Active Substance: PROPOFOL
     Indication: Laparoscopic surgery
  9. PROPOFOL [Suspect]
     Active Substance: PROPOFOL
     Indication: Nephrectomy
  10. FENTANYL [Suspect]
     Active Substance: FENTANYL
     Indication: General anaesthesia
     Dosage: UNREMARKABLE INTUBATION (ET TUBE) GA, INHALATION
     Route: 055
     Dates: start: 20220609, end: 20220609
  11. FENTANYL [Suspect]
     Active Substance: FENTANYL
     Indication: Laparoscopic surgery
  12. FENTANYL [Suspect]
     Active Substance: FENTANYL
     Indication: Nephrectomy
  13. ACETAMINOPHEN [Suspect]
     Active Substance: ACETAMINOPHEN
     Dosage: 1 GRAM
     Route: 042
     Dates: start: 20220609, end: 20220609
  14. ROCURONIUM [Suspect]
     Active Substance: ROCURONIUM BROMIDE
     Indication: General anaesthesia
     Dosage: UNREMARKABLE INTUBATION (ET TUBE) GA, INHALATION
     Route: 055
     Dates: start: 20220609, end: 20220609
  15. ROCURONIUM [Suspect]
     Active Substance: ROCURONIUM BROMIDE
     Indication: Laparoscopic surgery
  16. ROCURONIUM [Suspect]
     Active Substance: ROCURONIUM BROMIDE
     Indication: Nephrectomy
  17. MORPHINE [Suspect]
     Active Substance: MORPHINE
     Indication: Spinal anaesthesia
     Dosage: 0.2ML (200MG), ADMINISTERED INTO SA SPACE RESULTING IN A STRONG BLOCK L4
     Route: 037
     Dates: start: 20220609, end: 20220609
  18. MORPHINE [Suspect]
     Active Substance: MORPHINE
     Indication: Laparoscopic surgery
     Dosage: ADDITIONAL 5 MG
     Route: 042
     Dates: start: 20220609, end: 20220609
  19. MORPHINE [Suspect]
     Active Substance: MORPHINE
     Indication: Nephrectomy
  20. PHENYLEPHRINE [Suspect]
     Active Substance: PHENYLEPHRINE HYDROCHLORIDE
     Indication: Procedural haemorrhage
     Dosage: UNK
     Route: 065
     Dates: start: 20220609

REACTIONS (8)
  - Haemorrhage [Unknown]
  - Cyanosis [Unknown]
  - Incorrect dose administered [Unknown]
  - General physical health deterioration [Unknown]
  - Depressed level of consciousness [Unknown]
  - Agitation [Unknown]
  - Respiratory depression [Recovered/Resolved]
  - Blood pressure decreased [Recovered/Resolved]

NARRATIVE: CASE EVENT DATE: 20220609
